FAERS Safety Report 8401173-6 (Version None)
Quarter: 2012Q2

REPORT INFORMATION
  Report Type: 
  Country: None (occurrence: None)
  Receive Date: 20120529
  Receipt Date: 20120529
  Transmission Date: 20120825
  Serious: Yes (Other)
  Sender: FDA-Public Use
  Company Number: None

PATIENT
  Age: 47 Year
  Sex: Female
  Weight: 61.4 kg

DRUGS (1)
  1. GABAPENTIN [Suspect]
     Indication: BIPOLAR DISORDER
     Dosage: 800 MG 1 PO @HS PO
     Route: 048
     Dates: start: 20111101, end: 20111201

REACTIONS (2)
  - PRODUCT SUBSTITUTION ISSUE [None]
  - DRUG INEFFECTIVE [None]
